FAERS Safety Report 14640757 (Version 21)
Quarter: 2024Q2

REPORT INFORMATION
  Report Type: Other
  Country: DE (occurrence: None)
  Receive Date: 20180315
  Receipt Date: 20240608
  Transmission Date: 20240716
  Serious: Yes (Other)
  Sender: FDA-Public Use
  Company Number: DE-ROCHE-2088910

PATIENT
  Age: 32 Year
  Sex: Female

DRUGS (11)
  1. OCREVUS [Suspect]
     Active Substance: OCRELIZUMAB
     Indication: Relapsing-remitting multiple sclerosis
     Dosage: NEXT SUBSEQUENT OCRELIZUMAB INFUSION: 21/MAR/2018, 600 MG 182 DYAS.
     Route: 042
     Dates: start: 20180305
  2. OCREVUS [Suspect]
     Active Substance: OCRELIZUMAB
     Route: 042
     Dates: start: 20200130
  3. OCREVUS [Suspect]
     Active Substance: OCRELIZUMAB
     Route: 042
     Dates: start: 20210111, end: 20210111
  4. OCREVUS [Suspect]
     Active Substance: OCRELIZUMAB
     Route: 042
     Dates: start: 20210726
  5. OCREVUS [Suspect]
     Active Substance: OCRELIZUMAB
     Route: 042
  6. DIMETHINDENE [Concomitant]
     Active Substance: DIMETHINDENE
     Indication: Premedication
  7. METHYLPREDNISOLONE [Concomitant]
     Active Substance: METHYLPREDNISOLONE
  8. ACETAMINOPHEN [Concomitant]
     Active Substance: ACETAMINOPHEN
  9. MONAPAX [Concomitant]
  10. VOLTAREN [Concomitant]
     Active Substance: DICLOFENAC SODIUM
  11. VITAMIN D3 [Concomitant]
     Active Substance: CHOLECALCIFEROL

REACTIONS (31)
  - Cardiovascular insufficiency [Recovered/Resolved]
  - Blood pressure decreased [Not Recovered/Not Resolved]
  - Heart rate increased [Recovered/Resolved]
  - Fatigue [Not Recovered/Not Resolved]
  - Nasopharyngitis [Recovered/Resolved]
  - White blood cell count increased [Recovered/Resolved]
  - Eosinophil count decreased [Recovered/Resolved]
  - Gastrointestinal infection [Recovered/Resolved]
  - Gait disturbance [Not Recovered/Not Resolved]
  - Limb discomfort [Not Recovered/Not Resolved]
  - Pain in extremity [Recovered/Resolved]
  - Peripheral swelling [Not Recovered/Not Resolved]
  - Muscle tightness [Not Recovered/Not Resolved]
  - Lymphocyte count decreased [Recovered/Resolved]
  - Musculoskeletal stiffness [Recovered/Resolved]
  - Pallor [Recovered/Resolved]
  - Uterine leiomyoma [Not Recovered/Not Resolved]
  - Body temperature increased [Recovered/Resolved]
  - Headache [Recovered/Resolved]
  - Alanine aminotransferase increased [Recovered/Resolved]
  - Gamma-glutamyltransferase increased [Recovered/Resolved]
  - Menstruation irregular [Recovered/Resolved]
  - Influenza like illness [Recovered/Resolved]
  - Oral herpes [Recovered/Resolved]
  - Palpitations [Recovered/Resolved]
  - COVID-19 [Recovered/Resolved]
  - Back pain [Recovered/Resolved]
  - Intervertebral disc protrusion [Recovered/Resolved]
  - Pallor [Recovered/Resolved]
  - Haemangioma [Not Recovered/Not Resolved]
  - Palpitations [Recovered/Resolved]

NARRATIVE: CASE EVENT DATE: 20180305
